APPROVED DRUG PRODUCT: QUETIAPINE FUMARATE
Active Ingredient: QUETIAPINE FUMARATE
Strength: EQ 300MG BASE
Dosage Form/Route: TABLET;ORAL
Application: A203390 | Product #005
Applicant: ALEMBIC PHARMACEUTICALS LTD
Approved: Oct 28, 2014 | RLD: No | RS: No | Type: DISCN